FAERS Safety Report 8666865 (Version 3)
Quarter: 2012Q4

REPORT INFORMATION
  Report Type: Report from Study
  Country: JP (occurrence: JP)
  Receive Date: 20120716
  Receipt Date: 20120925
  Transmission Date: 20130627
  Serious: Yes (Life-Threatening, Hospitalization)
  Sender: FDA-Public Use
  Company Number: JP-CELGENEUS-087-50794-12071438

PATIENT
  Age: 72 Year
  Sex: Male
  Weight: 72 kg

DRUGS (35)
  1. VIDAZA [Suspect]
     Indication: MYELODYSPLASTIC SYNDROME
     Dosage: 75 milligram/sq. meter
     Route: 058
     Dates: start: 20120227, end: 20120304
  2. VIDAZA [Suspect]
     Dosage: 37.5 milligram/sq. meter
     Route: 058
     Dates: start: 20120418, end: 20120424
  3. VIDAZA [Suspect]
     Dosage: 37.5 milligram/sq. meter
     Route: 058
     Dates: start: 20120516, end: 20120522
  4. VIDAZA [Suspect]
     Dosage: 37.5 milligram/sq. meter
     Route: 058
     Dates: start: 20120613, end: 20120619
  5. NASEA [Concomitant]
     Indication: DRUG USE FOR UNKNOWN INDICATION
     Route: 065
     Dates: start: 20120227, end: 20120304
  6. NASEA [Concomitant]
     Route: 065
     Dates: start: 20120418, end: 20120424
  7. NASEA [Concomitant]
     Route: 065
     Dates: start: 20120516, end: 20120522
  8. NASEA [Concomitant]
     Route: 065
     Dates: start: 20120613, end: 20120619
  9. FLUCONAZOLE [Concomitant]
     Indication: DRUG USE FOR UNKNOWN INDICATION
     Route: 065
     Dates: start: 20120229, end: 20120408
  10. BAKTAR [Concomitant]
     Indication: DRUG USE FOR UNKNOWN INDICATION
     Route: 065
     Dates: start: 20120229
  11. BAKTAR [Concomitant]
     Route: 065
  12. D-SORBITOL [Concomitant]
     Indication: DRUG USE FOR UNKNOWN INDICATION
     Route: 065
     Dates: start: 20120301
  13. D-SORBITOL [Concomitant]
     Route: 065
  14. CEFEPIME DIHYDROCHLORIDE HYDRATE [Concomitant]
     Indication: DRUG USE FOR UNKNOWN INDICATION
     Route: 065
     Dates: start: 20120322, end: 20120326
  15. CEFEPIME DIHYDROCHLORIDE HYDRATE [Concomitant]
     Route: 065
     Dates: start: 20120412, end: 20120419
  16. CEFEPIME DIHYDROCHLORIDE HYDRATE [Concomitant]
     Route: 065
     Dates: start: 20120427, end: 20120430
  17. CRAVIT [Concomitant]
     Indication: DRUG USE FOR UNKNOWN INDICATION
     Route: 065
     Dates: start: 20120327, end: 20120329
  18. CRAVIT [Concomitant]
     Route: 065
     Dates: start: 20120424, end: 20120430
  19. CRAVIT [Concomitant]
     Route: 065
     Dates: start: 20120530, end: 20120612
  20. AUGMENTIN [Concomitant]
     Indication: DRUG USE FOR UNKNOWN INDICATION
     Route: 065
     Dates: start: 20120405, end: 20120413
  21. AUGMENTIN [Concomitant]
     Route: 065
     Dates: start: 20120530, end: 20120612
  22. ITRIZOLE [Concomitant]
     Indication: DRUG USE FOR UNKNOWN INDICATION
     Route: 065
     Dates: start: 20120409, end: 20120502
  23. ITRIZOLE [Concomitant]
     Route: 065
     Dates: start: 20120629
  24. MEROPEN [Concomitant]
     Indication: DRUG USE FOR UNKNOWN INDICATION
     Route: 065
     Dates: start: 20120430, end: 20120503
  25. AMBISOME [Concomitant]
     Indication: DRUG USE FOR UNKNOWN INDICATION
     Route: 065
     Dates: start: 20120503, end: 20120514
  26. AMBISOME [Concomitant]
     Route: 065
     Dates: start: 20120521, end: 20120628
  27. ISCOTIN [Concomitant]
     Indication: DRUG USE FOR UNKNOWN INDICATION
     Route: 065
     Dates: start: 20120501
  28. KLARICID [Concomitant]
     Indication: DRUG USE FOR UNKNOWN INDICATION
     Route: 065
     Dates: start: 20120503, end: 20120509
  29. KLARICID [Concomitant]
     Route: 065
     Dates: start: 20120517, end: 20120523
  30. LUPRAC [Concomitant]
     Indication: DRUG USE FOR UNKNOWN INDICATION
     Route: 065
     Dates: start: 20120501
  31. VFEND [Concomitant]
     Indication: DRUG USE FOR UNKNOWN INDICATION
     Route: 065
     Dates: start: 20120515, end: 20120520
  32. SLOW-K [Concomitant]
     Indication: DRUG USE FOR UNKNOWN INDICATION
     Route: 065
     Dates: end: 20120703
  33. VASOLAN [Concomitant]
     Indication: DRUG USE FOR UNKNOWN INDICATION
     Route: 065
     Dates: start: 20120525
  34. PYDOXAL [Concomitant]
     Indication: DRUG USE FOR UNKNOWN INDICATION
     Route: 065
     Dates: start: 20120525
  35. FOIPAN [Concomitant]
     Indication: DRUG USE FOR UNKNOWN INDICATION
     Route: 065

REACTIONS (5)
  - Neutrophil count decreased [Not Recovered/Not Resolved]
  - Febrile neutropenia [Recovered/Resolved]
  - Febrile neutropenia [Recovered/Resolved]
  - Febrile neutropenia [Recovered/Resolved]
  - Febrile neutropenia [Recovering/Resolving]
